FAERS Safety Report 22659742 (Version 1)
Quarter: 2023Q2

REPORT INFORMATION
  Report Type: Spontaneous
  Country: US (occurrence: None)
  Receive Date: 20230622
  Receipt Date: 20230622
  Transmission Date: 20230721
  Serious: Yes (Other)
  Sender: FDA-Public Use
  Company Number: None

PATIENT
  Sex: Female
  Weight: 72.57 kg

DRUGS (1)
  1. LEVOTHYROXINE [Suspect]
     Active Substance: LEVOTHYROXINE
     Dosage: OTHER QUANTITY : 30;?FREQUENCY : DAILY;?
     Route: 048

REACTIONS (6)
  - Alopecia [None]
  - Madarosis [None]
  - Madarosis [None]
  - Blepharospasm [None]
  - Blindness unilateral [None]
  - Depression [None]
